FAERS Safety Report 14031176 (Version 2)
Quarter: 2017Q4

REPORT INFORMATION
  Report Type: Report from Study
  Country: ES (occurrence: ES)
  Receive Date: 20171002
  Receipt Date: 20171005
  Transmission Date: 20180321
  Serious: Yes (Hospitalization)
  Sender: FDA-Public Use
  Company Number: ES-SA-2017SA179327

PATIENT
  Age: 86 Year
  Sex: Female

DRUGS (8)
  1. KETOCONAZOLE. [Interacting]
     Active Substance: KETOCONAZOLE
     Dosage: ?1 DAY APPLICATION
     Route: 061
     Dates: start: 20170212, end: 20170326
  2. SPIRIVA [Concomitant]
     Active Substance: TIOTROPIUM BROMIDE MONOHYDRATE
     Indication: ASTHMA
     Dosage: INHALATION POWDER,
     Route: 055
     Dates: start: 20140401
  3. METAMIZOLE [Concomitant]
     Active Substance: METAMIZOLE
     Indication: PAIN
     Dosage: 1-1-1
     Route: 048
     Dates: start: 20170112, end: 20170326
  4. AMERIDE (AMILORIDE HYDROCHLORIDE\HYDROCHLOROTHIAZIDE) [Interacting]
     Active Substance: AMILORIDE HYDROCHLORIDE\HYDROCHLOROTHIAZIDE
     Indication: HYPERTENSION
     Dosage: 1/2-0-0
     Route: 048
     Dates: start: 20140401
  5. EUTIROX [Concomitant]
     Active Substance: LEVOTHYROXINE SODIUM
     Indication: HYPOTHYROIDISM
     Dosage: 1 CP
     Route: 048
     Dates: start: 20140401
  6. APROVEL [Suspect]
     Active Substance: IRBESARTAN
     Indication: HYPERTENSION
     Dosage: 1-0-0
     Route: 048
     Dates: start: 20140401, end: 20170326
  7. AMLODIPINE [Concomitant]
     Active Substance: AMLODIPINE BESYLATE
     Indication: HYPERTENSION
     Dosage: 1 CP
     Route: 048
     Dates: start: 20140401
  8. EZETROL [Concomitant]
     Active Substance: EZETIMIBE
     Indication: ARTERIOSCLEROSIS
     Dosage: 0-0-1
     Route: 048
     Dates: start: 20160101

REACTIONS (3)
  - Atrial fibrillation [Recovered/Resolved]
  - Bradycardia [Recovered/Resolved]
  - Hyperkalaemia [Recovered/Resolved]

NARRATIVE: CASE EVENT DATE: 20170326
